FAERS Safety Report 9309735 (Version 1)
Quarter: 2013Q2

REPORT INFORMATION
  Report Type: Spontaneous
  Country: US (occurrence: US)
  Receive Date: 20130525
  Receipt Date: 20130525
  Transmission Date: 20140414
  Serious: Yes (Hospitalization, Other)
  Sender: FDA-Public Use
  Company Number: US-BRISTOL-MYERS SQUIBB COMPANY-18586834

PATIENT
  Age: 54 Year
  Sex: Female
  Weight: 117.91 kg

DRUGS (8)
  1. BYDUREON [Suspect]
     Indication: TYPE 2 DIABETES MELLITUS
     Route: 058
     Dates: start: 20121020
  2. LANTUS [Concomitant]
     Indication: TYPE 2 DIABETES MELLITUS
     Route: 058
  3. HUMALOG [Concomitant]
     Indication: TYPE 2 DIABETES MELLITUS
     Route: 058
  4. ASPIRIN [Concomitant]
     Route: 048
  5. ALTACE [Concomitant]
     Indication: BLOOD PRESSURE
     Route: 048
  6. LIPITOR [Concomitant]
     Route: 048
  7. DYAZIDE [Concomitant]
     Indication: BLOOD PRESSURE
     Route: 048
  8. INSULIN ASPART [Concomitant]
     Indication: DIABETES MELLITUS

REACTIONS (3)
  - Injection site abscess [Recovered/Resolved with Sequelae]
  - Injection site nodule [Unknown]
  - Off label use [Not Recovered/Not Resolved]
